FAERS Safety Report 4717673-6 (Version None)
Quarter: 2005Q3

REPORT INFORMATION
  Report Type: 
  Country: None (occurrence: None)
  Receive Date: 20050713
  Receipt Date: 20040928
  Transmission Date: 20060218
  Serious: Yes (Other)
  Sender: FDA-Public Use
  Company Number: 2004236355US

PATIENT
  Age: 70 Year
  Sex: Female
  Weight: 90.7 kg

DRUGS (10)
  1. DEPO-MEDROL [Suspect]
     Indication: KNEE OPERATION
     Dosage: 5 ML
     Dates: start: 20040927
  2. AVANDIA [Concomitant]
  3. GLYBURIDE [Concomitant]
  4. ISOPTIN [Concomitant]
  5. COZAAR [Concomitant]
  6. SYNTHROID [Concomitant]
  7. LIPITOR [Concomitant]
  8. CUMADIN (WARFARIN SODIUM) [Concomitant]
  9. VITAMINS NOS (VITAMINS NOS) [Concomitant]
  10. GLUCOSAMINE [Concomitant]

REACTIONS (1)
  - BLOOD GLUCOSE INCREASED [None]
